FAERS Safety Report 6426711-4 (Version None)
Quarter: 2009Q4

REPORT INFORMATION
  Report Type: 
  Country: None (occurrence: None)
  Receive Date: 20091104
  Receipt Date: 20091022
  Transmission Date: 20100525
  Serious: Yes (Other)
  Sender: FDA-Public Use
  Company Number: US-ELI_LILLY_AND_COMPANY-US200910005735

PATIENT
  Sex: Male

DRUGS (5)
  1. CIALIS [Suspect]
     Dosage: UNK, UNKNOWN
     Route: 065
  2. VITAMINS [Concomitant]
     Dosage: UNK, UNKNOWN
     Route: 065
  3. LOTREL [Concomitant]
     Dosage: UNK, UNKNOWN
     Route: 065
  4. LABETALOL HCL [Concomitant]
     Dosage: UNK, 2/D
     Route: 065
  5. LISINOPRIL [Concomitant]
     Dosage: 20 MG, DAILY (1/D)
     Route: 065

REACTIONS (4)
  - BLADDER NEOPLASM [None]
  - BLOOD URINE PRESENT [None]
  - INTENTIONAL DRUG MISUSE [None]
  - PROSTATOMEGALY [None]
